FAERS Safety Report 23202643 (Version 1)
Quarter: 2023Q4

REPORT INFORMATION
  Report Type: Spontaneous
  Country: US (occurrence: US)
  Receive Date: 20231120
  Receipt Date: 20231120
  Transmission Date: 20240110
  Serious: Yes (Other)
  Sender: FDA-Public Use
  Company Number: US-THE RITEDOSE CORPORATION-2023RIT000130

PATIENT

DRUGS (1)
  1. IPRATROPIUM BROMIDE AND ALBUTEROL SULFATE [Suspect]
     Active Substance: ALBUTEROL SULFATE\IPRATROPIUM BROMIDE
     Indication: Secretion discharge
     Dosage: UNK
     Route: 055
     Dates: start: 202308

REACTIONS (5)
  - Choking [Recovered/Resolved]
  - Dizziness [Not Recovered/Not Resolved]
  - Tremor [Not Recovered/Not Resolved]
  - Therapeutic response shortened [Unknown]
  - Product use in unapproved indication [Unknown]

NARRATIVE: CASE EVENT DATE: 20230101
